FAERS Safety Report 6246284-9 (Version None)
Quarter: 2009Q2

REPORT INFORMATION
  Report Type: 
  Country: None (occurrence: None)
  Receive Date: 20090626
  Receipt Date: 20090616
  Transmission Date: 20091009
  Serious: Yes (Death, Hospitalization, Other)
  Sender: FDA-Public Use
  Company Number: PHHY2008MX30153

PATIENT
  Age: 75 Year
  Sex: Female

DRUGS (2)
  1. DIOVAN HCT [Suspect]
     Indication: HYPERTENSION
     Dosage: 1 DF, QD
     Route: 048
     Dates: start: 20060101
  2. CHEMOTHERAPEUTICS NOS [Concomitant]
     Indication: NEOPLASM MALIGNANT
     Dosage: 1 TIME EVERY MONTH

REACTIONS (8)
  - BREAST CANCER [None]
  - FALL [None]
  - GASTROINTESTINAL HAEMORRHAGE [None]
  - HIP FRACTURE [None]
  - HYPOTENSION [None]
  - METASTASIS [None]
  - MULTI-ORGAN FAILURE [None]
  - PROSTHESIS IMPLANTATION [None]
